FAERS Safety Report 16446415 (Version 1)
Quarter: 2019Q2

REPORT INFORMATION
  Report Type: Spontaneous
  Country: IT (occurrence: IT)
  Receive Date: 20190618
  Receipt Date: 20190618
  Transmission Date: 20190711
  Serious: Yes (Life-Threatening)
  Sender: FDA-Public Use
  Company Number: IT-PFIZER INC-2019259277

PATIENT
  Age: 14 Year
  Sex: Female
  Weight: 59 kg

DRUGS (7)
  1. PARACETAMOL [Concomitant]
     Active Substance: ACETAMINOPHEN
     Dosage: 2400 MG, 1X/DAY
     Dates: start: 20190514
  2. AMIKACIN SULFATE. [Concomitant]
     Active Substance: AMIKACIN SULFATE
     Dosage: 900 MG, 1X/DAY
     Dates: start: 20190501, end: 20190521
  3. METRONIDAZOLE. [Concomitant]
     Active Substance: METRONIDAZOLE
     Dosage: 1200 MG, 1X/DAY
  4. DAUNORUBICIN [Concomitant]
     Active Substance: DAUNORUBICIN
     Dosage: 50 MG, AS NEEDED
     Dates: start: 20190510, end: 20190510
  5. VINCRISTINE SULFATE. [Suspect]
     Active Substance: VINCRISTINE SULFATE
     Dosage: 2 MG, AS NEEDED
     Dates: start: 20190510, end: 20190510
  6. RANITIDINE. [Concomitant]
     Active Substance: RANITIDINE
     Dosage: 150 MG, 1X/DAY
  7. MEROPENEM. [Concomitant]
     Active Substance: MEROPENEM
     Dosage: 4.5 G, 1X/DAY
     Dates: start: 20190503, end: 20190522

REACTIONS (1)
  - Intestinal perforation [Recovered/Resolved]

NARRATIVE: CASE EVENT DATE: 20190522
